FAERS Safety Report 6647771-1 (Version None)
Quarter: 2010Q1

REPORT INFORMATION
  Report Type: 
  Country: None (occurrence: None)
  Receive Date: 20100324
  Receipt Date: 20100316
  Transmission Date: 20100710
  Serious: Yes (Hospitalization)
  Sender: FDA-Public Use
  Company Number: US-BIOGENIDEC-2009BI039345

PATIENT
  Age: 50 Year
  Sex: Female
  Weight: 72 kg

DRUGS (3)
  1. AVONEX [Suspect]
     Indication: MULTIPLE SCLEROSIS
     Route: 030
     Dates: start: 20000101, end: 20040501
  2. AVONEX [Suspect]
     Route: 030
     Dates: start: 20080821, end: 20090201
  3. AVONEX [Suspect]
     Route: 030
     Dates: start: 20090901

REACTIONS (4)
  - COORDINATION ABNORMAL [None]
  - KNEE ARTHROPLASTY [None]
  - MEDICAL DEVICE COMPLICATION [None]
  - MULTIPLE SCLEROSIS RELAPSE [None]
